FAERS Safety Report 5512165-9 (Version None)
Quarter: 2007Q4

REPORT INFORMATION
  Report Type: 
  Country: None (occurrence: None)
  Receive Date: 20071112
  Receipt Date: 20071031
  Transmission Date: 20080405
  Serious: Yes (Disabling, Other)
  Sender: FDA-Public Use
  Company Number: PHBS2007LB18412

PATIENT
  Age: 48 Year
  Sex: Male

DRUGS (2)
  1. PROZAC [Concomitant]
     Dates: start: 20020501
  2. LEPONEX [Suspect]
     Dosage: 400MG /DAILY
     Route: 048
     Dates: start: 19950101

REACTIONS (8)
  - ACTIVITIES OF DAILY LIVING IMPAIRED [None]
  - APATHY [None]
  - ASTHENIA [None]
  - DISTURBANCE IN ATTENTION [None]
  - HYPOMANIA [None]
  - INSOMNIA [None]
  - POOR QUALITY DRUG ADMINISTERED [None]
  - SPEECH DISORDER [None]
